FAERS Safety Report 19743917 (Version 1)
Quarter: 2021Q3

REPORT INFORMATION
  Report Type: Spontaneous
  Country: JP (occurrence: JP)
  Receive Date: 20210824
  Receipt Date: 20210824
  Transmission Date: 20211014
  Serious: Yes (Hospitalization, Other)
  Sender: FDA-Public Use
  Company Number: JP-SETONPHARMA-2021SETLIT00031

PATIENT
  Age: 67 Year
  Sex: Female

DRUGS (7)
  1. PREDNISOLONE. [Suspect]
     Active Substance: PREDNISOLONE
     Indication: STILL^S DISEASE
     Route: 065
  2. TACROLIMUS. [Suspect]
     Active Substance: TACROLIMUS
     Indication: STILL^S DISEASE
  3. PREDNISOLONE. [Suspect]
     Active Substance: PREDNISOLONE
     Route: 065
  4. TACROLIMUS. [Suspect]
     Active Substance: TACROLIMUS
  5. TACROLIMUS. [Suspect]
     Active Substance: TACROLIMUS
  6. METHOTREXATE. [Suspect]
     Active Substance: METHOTREXATE
     Indication: STILL^S DISEASE
  7. PREDNISOLONE. [Suspect]
     Active Substance: PREDNISOLONE
     Dosage: 1 MG/KG
     Route: 065

REACTIONS (6)
  - Still^s disease [Recovering/Resolving]
  - Disease recurrence [Recovering/Resolving]
  - Rash [Recovering/Resolving]
  - Off label use [Unknown]
  - Decreased appetite [Recovering/Resolving]
  - Fatigue [Recovering/Resolving]
